FAERS Safety Report 25595913 (Version 2)
Quarter: 2025Q3

REPORT INFORMATION
  Report Type: Spontaneous
  Country: EU (occurrence: EU)
  Receive Date: 20250723
  Receipt Date: 20250812
  Transmission Date: 20251020
  Serious: Yes (Hospitalization, Other)
  Sender: ELI LILLY AND COMPANY
  Company Number: None

PATIENT
  Age: 87 Year
  Sex: Female

DRUGS (8)
  1. HUMALOG [Suspect]
     Active Substance: INSULIN LISPRO
     Indication: Type 2 diabetes mellitus
     Dosage: 6 U, DAILY, BREAKFAST
     Route: 058
     Dates: start: 2022
  2. HUMALOG [Suspect]
     Active Substance: INSULIN LISPRO
     Dosage: 8 U, DAILY, LUNCH
     Route: 058
     Dates: start: 2022
  3. HUMALOG [Suspect]
     Active Substance: INSULIN LISPRO
     Dosage: 10 U, DAILY, DINNER
     Route: 058
     Dates: start: 2022
  4. LANTUS [Suspect]
     Active Substance: INSULIN GLARGINE
     Indication: Type 2 diabetes mellitus
     Route: 058
  5. ASPIRIN LYSINE [Concomitant]
     Active Substance: ASPIRIN LYSINE
     Indication: Thrombosis prophylaxis
     Dosage: 160 MG, DAILY
     Route: 048
  6. CARVEDILOL [Concomitant]
     Active Substance: CARVEDILOL
     Indication: Hypertensive heart disease
     Dosage: 25 MG, DAILY
     Route: 048
  7. COUMADIN [Concomitant]
     Active Substance: WARFARIN SODIUM
     Indication: Thrombosis prophylaxis
     Route: 048
     Dates: start: 2020
  8. ATORVASTATIN [Concomitant]
     Active Substance: ATORVASTATIN
     Indication: Hypercholesterolaemia
     Route: 048

REACTIONS (1)
  - Hyperinsulinaemic hypoglycaemia [Recovered/Resolved]

NARRATIVE: CASE EVENT DATE: 20231123
